FAERS Safety Report 7711956-3 (Version None)
Quarter: 2011Q3

REPORT INFORMATION
  Report Type: 
  Country: None (occurrence: None)
  Receive Date: 20110826
  Receipt Date: 20110531
  Transmission Date: 20111222
  Serious: No
  Sender: FDA-Public Use
  Company Number: US-PFIZER INC-2011118692

PATIENT

DRUGS (1)
  1. GEODON [Suspect]
     Route: 064

REACTIONS (1)
  - MATERNAL EXPOSURE DURING PREGNANCY [None]
